FAERS Safety Report 4699232-7 (Version None)
Quarter: 2005Q2

REPORT INFORMATION
  Report Type: 
  Country: None (occurrence: None)
  Receive Date: 20050622
  Receipt Date: 20050614
  Transmission Date: 20051028
  Serious: Yes (Death, Life-Threatening, Hospitalization)
  Sender: FDA-Public Use
  Company Number: 2005085646

PATIENT
  Age: 73 Year
  Sex: Male

DRUGS (4)
  1. SOLU-MEDROL [Suspect]
     Indication: PYREXIA
     Dosage: 500 MG (1 IN 1 TOTAL), INTRAVENOUS
     Route: 042
     Dates: start: 20050601, end: 20050601
  2. SOLU-MEDROL [Suspect]
     Indication: URINARY BLADDER EXCISION
     Dosage: 500 MG (1 IN 1 TOTAL), INTRAVENOUS
     Route: 042
     Dates: start: 20050601, end: 20050601
  3. VOLTAREN [Suspect]
     Indication: PYREXIA
     Dosage: 50 MG (1 IN 1 TOTAL) ORAL
     Route: 048
     Dates: start: 20050601, end: 20050601
  4. VOLTAREN [Suspect]
     Indication: URINARY BLADDER EXCISION
     Dosage: 50 MG (1 IN 1 TOTAL) ORAL
     Route: 048
     Dates: start: 20050601, end: 20050601

REACTIONS (4)
  - ANAPHYLACTIC SHOCK [None]
  - BRAIN OEDEMA [None]
  - CARDIO-RESPIRATORY ARREST [None]
  - LOSS OF CONSCIOUSNESS [None]
